FAERS Safety Report 5282898-0 (Version None)
Quarter: 2007Q2

REPORT INFORMATION
  Report Type: 
  Country: None (occurrence: None)
  Receive Date: 20070402
  Receipt Date: 20070319
  Transmission Date: 20071010
  Serious: Yes (Hospitalization)
  Sender: FDA-Public Use
  Company Number: PHBS2007NL04963

PATIENT
  Sex: Male

DRUGS (3)
  1. DIOVAN [Suspect]
     Dosage: 80MG
     Route: 048
  2. CRESTOR [Concomitant]
  3. ANTICOAGULANTS [Concomitant]

REACTIONS (3)
  - BRONCHIAL OBSTRUCTION [None]
  - COUGH [None]
  - SURGERY [None]
